FAERS Safety Report 7533164-1 (Version None)
Quarter: 2011Q2

REPORT INFORMATION
  Report Type: 
  Country: None (occurrence: None)
  Receive Date: 20110608
  Receipt Date: 20030715
  Transmission Date: 20111010
  Serious: Yes (Hospitalization)
  Sender: FDA-Public Use
  Company Number: PHFR2003GB01520

PATIENT
  Sex: Male

DRUGS (3)
  1. LITHIUM CARBONATE [Concomitant]
     Dosage: 600 MG, DAILY
     Route: 048
  2. VENLAFAXINE [Concomitant]
     Dosage: 225 MG, DAILY
     Route: 048
  3. CLOZAPINE [Suspect]
     Indication: SCHIZOPHRENIA
     Dosage: 450 MG, DAILY
     Route: 048
     Dates: start: 20020715

REACTIONS (6)
  - WHITE BLOOD CELL COUNT INCREASED [None]
  - NEUTROPHIL COUNT INCREASED [None]
  - URINARY TRACT INFECTION [None]
  - HIP FRACTURE [None]
  - CONFUSIONAL STATE [None]
  - FALL [None]
